FAERS Safety Report 5852643-6 (Version None)
Quarter: 2008Q3

REPORT INFORMATION
  Report Type: 
  Country: None (occurrence: None)
  Receive Date: 20080821
  Receipt Date: 20080812
  Transmission Date: 20090109
  Serious: Yes (Other)
  Sender: FDA-Public Use
  Company Number: B0531310A

PATIENT
  Age: 52 Year
  Sex: Male

DRUGS (5)
  1. ANDRODERM [Suspect]
     Indication: ANDROGEN REPLACEMENT THERAPY
     Dosage: 2.5MG PER DAY
     Route: 061
     Dates: start: 20080704, end: 20080726
  2. SERETIDE [Suspect]
     Indication: DRUG USE FOR UNKNOWN INDICATION
     Dosage: 2PUFF TWICE PER DAY
     Route: 055
  3. SALAMOL [Concomitant]
  4. SPIRIVA [Concomitant]
  5. PREDNISOLONE [Concomitant]

REACTIONS (2)
  - ABNORMAL BEHAVIOUR [None]
  - HALLUCINATION [None]
